FAERS Safety Report 13561664 (Version 7)
Quarter: 2017Q4

REPORT INFORMATION
  Report Type: Spontaneous
  Country: US (occurrence: US)
  Receive Date: 20170518
  Receipt Date: 20171201
  Transmission Date: 20180320
  Serious: No
  Sender: FDA-Public Use
  Company Number: US-ACTELION-A-US2017-153952

PATIENT
  Age: 76 Year
  Sex: Female

DRUGS (1)
  1. VALCHLOR [Suspect]
     Active Substance: MECHLORETHAMINE
     Indication: MYCOSIS FUNGOIDES
     Dosage: UNK , QD
     Route: 061
     Dates: start: 201705

REACTIONS (18)
  - Skin burning sensation [Unknown]
  - Dyschezia [Unknown]
  - Ear discomfort [Unknown]
  - Cystitis [Unknown]
  - Pruritus [Unknown]
  - Application site discolouration [Unknown]
  - Malaise [Unknown]
  - Skin exfoliation [Unknown]
  - Cough [Recovering/Resolving]
  - Dysuria [Unknown]
  - Night sweats [Unknown]
  - Vomiting [Unknown]
  - Lower respiratory tract infection [Unknown]
  - Erythema [Unknown]
  - Skin lesion [Unknown]
  - Seasonal allergy [Unknown]
  - Alopecia [Unknown]
  - Application site pain [Recovered/Resolved]
